FAERS Safety Report 11497983 (Version 3)
Quarter: 2015Q4

REPORT INFORMATION
  Report Type: Spontaneous
  Country: JP (occurrence: JP)
  Receive Date: 20150911
  Receipt Date: 20151103
  Transmission Date: 20160304
  Serious: Yes (Hospitalization)
  Sender: FDA-Public Use
  Company Number: JP-SA-2015SA137915

PATIENT
  Age: 80 Year
  Sex: Female

DRUGS (8)
  1. PLAVIX [Suspect]
     Active Substance: CLOPIDOGREL BISULFATE
     Route: 065
  2. FENTANYL. [Concomitant]
     Active Substance: FENTANYL
  3. HEPARIN [Concomitant]
     Active Substance: HEPARIN SODIUM
     Dosage: 5000 UNITS
  4. ROCURONIUM [Concomitant]
     Active Substance: ROCURONIUM BROMIDE
  5. SEVOFLURANE. [Concomitant]
     Active Substance: SEVOFLURANE
  6. REMIFENTANIL [Concomitant]
     Active Substance: REMIFENTANIL
  7. PROPOFOL. [Concomitant]
     Active Substance: PROPOFOL
  8. ACETYLSALICYLIC ACID [Suspect]
     Active Substance: ASPIRIN
     Route: 065

REACTIONS (4)
  - Haematoma [Unknown]
  - Hypovolaemic shock [Recovered/Resolved]
  - Procedural hypotension [Recovered/Resolved]
  - Procedural haemorrhage [Recovering/Resolving]
